FAERS Safety Report 7324031-7 (Version None)
Quarter: 2011Q1

REPORT INFORMATION
  Report Type: 
  Country: None (occurrence: None)
  Receive Date: 20110217
  Receipt Date: 20110202
  Transmission Date: 20110831
  Serious: Yes (Hospitalization)
  Sender: FDA-Public Use
  Company Number: 023955

PATIENT
  Sex: Female
  Weight: 67.4 kg

DRUGS (11)
  1. DORSPIRENONE W/ETHINYLESTRADIOL [Concomitant]
  2. MULTI-VITAMIN [Concomitant]
  3. FERROUS SULFATE TAB [Concomitant]
  4. NEXIUM [Concomitant]
  5. NATURES OWN REFLUX FREE OMEGA-3 FISH OIL [Concomitant]
  6. CENTRUM [Concomitant]
  7. CIMZIA [Suspect]
     Indication: CROHN'S DISEASE
     Dosage: 200 MG 1X2 WEEKS, SUBCUTANEOUS
     Route: 058
     Dates: start: 20080909
  8. CIMZIA [Suspect]
     Indication: CROHN'S DISEASE
     Dosage: 200 MG 1X2 WEEKS, SUBCUTANEOUS
     Route: 058
     Dates: end: 20090101
  9. MELATONIN [Concomitant]
  10. ZYRTEC [Concomitant]
  11. B-12 LATINO [Concomitant]

REACTIONS (2)
  - CONDITION AGGRAVATED [None]
  - CROHN'S DISEASE [None]
